FAERS Safety Report 21163267 (Version 1)
Quarter: 2022Q3

REPORT INFORMATION
  Report Type: Spontaneous
  Country: US (occurrence: US)
  Receive Date: 20220802
  Receipt Date: 20220802
  Transmission Date: 20221027
  Serious: No
  Sender: FDA-Public Use
  Company Number: US-MYLANLABS-2022M1079813

PATIENT
  Sex: Female
  Weight: 71.67 kg

DRUGS (4)
  1. ESTRADIOL TRANSDERMAL SYSTEM [Suspect]
     Active Substance: ESTRADIOL
     Indication: Oestrogen replacement therapy
     Dosage: 0.05 MILLIGRAM, QD (ONCE-WEEKLY)
     Route: 062
     Dates: start: 202207
  2. CRESTOR [Concomitant]
     Active Substance: ROSUVASTATIN CALCIUM
     Indication: Blood cholesterol increased
     Dosage: UNK UNK, QD (ONCE A DAY )
     Route: 065
  3. FINASTERIDE [Concomitant]
     Active Substance: FINASTERIDE
     Indication: Alopecia
     Dosage: UNK, QD (ONCE A DAY )
     Route: 065
  4. CYMBALTA [Concomitant]
     Active Substance: DULOXETINE HYDROCHLORIDE
     Indication: Arthralgia
     Dosage: UNK, QD (ONCE A DAY )
     Route: 065

REACTIONS (3)
  - Product adhesion issue [Unknown]
  - Application site pain [Unknown]
  - Application site pruritus [Unknown]
